FAERS Safety Report 11200608 (Version 2)
Quarter: 2016Q2

REPORT INFORMATION
  Report Type: Spontaneous
  Country: AU (occurrence: AU)
  Receive Date: 20150618
  Receipt Date: 20160419
  Transmission Date: 20160815
  Serious: Yes (Hospitalization, Other)
  Sender: FDA-Public Use
  Company Number: AU-IMPAX LABORATORIES, INC-2015-IPXL-00643

PATIENT
  Age: 47 Year
  Sex: Male

DRUGS (5)
  1. CLONIDINE HYDROCHLORIDE. [Suspect]
     Active Substance: CLONIDINE HYDROCHLORIDE
     Dosage: 150 ?G, 5 /DAY
     Route: 048
  2. CLONIDINE HYDROCHLORIDE. [Suspect]
     Active Substance: CLONIDINE HYDROCHLORIDE
     Dosage: UNK
     Route: 048
  3. CLONIDINE HYDROCHLORIDE. [Suspect]
     Active Substance: CLONIDINE HYDROCHLORIDE
     Indication: HYPERTENSION
     Dosage: BOLUS OF 150 ?G (50 ?G/HR)
     Route: 042
  4. CLONIDINE HYDROCHLORIDE. [Suspect]
     Active Substance: CLONIDINE HYDROCHLORIDE
     Indication: BACK PAIN
     Dosage: 550 ?G/24HOURS
     Route: 037
  5. CLONIDINE HYDROCHLORIDE. [Suspect]
     Active Substance: CLONIDINE HYDROCHLORIDE
     Dosage: 25 ?G EVERY 5-10 MINUTES
     Route: 042

REACTIONS (10)
  - Drug withdrawal syndrome [Unknown]
  - Hypertensive crisis [Unknown]
  - Back pain [Unknown]
  - Hyperhidrosis [Unknown]
  - Nausea [Unknown]
  - Abdominal pain upper [Unknown]
  - Vomiting [Unknown]
  - Off label use [Unknown]
  - Left ventricular failure [Recovered/Resolved]
  - Stress cardiomyopathy [Recovered/Resolved]
